FAERS Safety Report 23887874 (Version 4)
Quarter: 2024Q4

REPORT INFORMATION
  Report Type: Spontaneous
  Country: US (occurrence: US)
  Receive Date: 20240523
  Receipt Date: 20241028
  Transmission Date: 20250115
  Serious: No
  Sender: Unknown Manufacturer
  Company Number: US-862174955-ML2024-03030

PATIENT
  Age: 61 Year
  Sex: Female
  Weight: 122 kg

DRUGS (2)
  1. DORZOLAMIDE HYDROCHLORIDE OPHTHALMIC SOLUTION [Suspect]
     Active Substance: DORZOLAMIDE HYDROCHLORIDE
     Indication: Glaucoma
     Dosage: ONE DROP IN EACH EYE, TWICE A DAY
     Route: 047
     Dates: start: 202401
  2. LATANOPROST [Concomitant]
     Active Substance: LATANOPROST
     Indication: Glaucoma

REACTIONS (8)
  - Condition aggravated [Unknown]
  - Intraocular pressure increased [Recovered/Resolved]
  - Eye irritation [Unknown]
  - Vision blurred [Unknown]
  - Product quality issue [Unknown]
  - Product odour abnormal [Unknown]
  - Expired product administered [Unknown]
  - Product dispensing error [Unknown]

NARRATIVE: CASE EVENT DATE: 20240201
